FAERS Safety Report 19247208 (Version 1)
Quarter: 2021Q2

REPORT INFORMATION
  Report Type: Spontaneous
  Country: GB (occurrence: GB)
  Receive Date: 20210512
  Receipt Date: 20210512
  Transmission Date: 20210717
  Serious: Yes (Disabling, Other)
  Sender: FDA-Public Use
  Company Number: GB-GUERBET-GB-20210066

PATIENT
  Age: 60 Year
  Sex: Male
  Weight: 80 kg

DRUGS (2)
  1. LEVOTHYROXINE. [Concomitant]
     Active Substance: LEVOTHYROXINE
     Indication: PRODUCT USED FOR UNKNOWN INDICATION
     Route: 065
  2. DOTAREM [Suspect]
     Active Substance: GADOTERATE MEGLUMINE
     Indication: MAGNETIC RESONANCE IMAGING
     Route: 051
     Dates: start: 20210216, end: 20210216

REACTIONS (13)
  - Gadolinium deposition disease [Unknown]
  - Nervous system disorder [Unknown]
  - Thinking abnormal [Unknown]
  - Asthenia [Unknown]
  - Cognitive disorder [Not Recovered/Not Resolved]
  - Disturbance in attention [Unknown]
  - Decreased appetite [Unknown]
  - Memory impairment [Unknown]
  - Muscle twitching [Recovered/Resolved]
  - Gait disturbance [Unknown]
  - Confusional state [Unknown]
  - Pain [Recovered/Resolved]
  - Metabolic disorder [Unknown]

NARRATIVE: CASE EVENT DATE: 20210216
